FAERS Safety Report 8525230-9 (Version None)
Quarter: 2012Q3

REPORT INFORMATION
  Report Type: 
  Country: None (occurrence: None)
  Receive Date: 20120720
  Receipt Date: 20120716
  Transmission Date: 20120928
  Serious: Yes (Other)
  Sender: FDA-Public Use
  Company Number: PHHY2012IL028717

PATIENT
  Sex: Male

DRUGS (3)
  1. SANDOSTATIN LAR [Suspect]
     Indication: CARCINOID TUMOUR
     Dosage: 30 MG, ONCE IN EVERY 28 DAYS
     Dates: start: 20111222
  2. SANDOSTATIN LAR [Suspect]
     Dosage: 30 MG, ONCE IN EVERY 28 DAYS
     Dates: start: 20120319
  3. SANDOSTATIN LAR [Suspect]
     Dosage: 30 MG, ONCE IN EVERY 28 DAYS
     Dates: start: 20120624

REACTIONS (1)
  - INGUINAL HERNIA [None]
